FAERS Safety Report 17001428 (Version 2)
Quarter: 2019Q4

REPORT INFORMATION
  Report Type: Spontaneous
  Country: US (occurrence: US)
  Receive Date: 20191106
  Receipt Date: 20191202
  Transmission Date: 20200122
  Serious: Yes (Life-Threatening, Disabling, Other)
  Sender: FDA-Public Use
  Company Number: US-SA-2019SA307054

PATIENT
  Age: 78 Year
  Sex: Female
  Weight: 61.5 kg

DRUGS (25)
  1. ACETYLSALICYLIC ACID [Suspect]
     Active Substance: ASPIRIN
     Dosage: 100 MG, UNK
     Route: 048
     Dates: start: 20190926, end: 20190926
  2. POTASSIUM CHLORIDE. [Concomitant]
     Active Substance: POTASSIUM CHLORIDE
     Dosage: 20 UNK, UNK
     Route: 065
     Dates: start: 20191008, end: 20191008
  3. FENTANYL. [Concomitant]
     Active Substance: FENTANYL
     Dosage: 25 MG, UNK
     Route: 065
     Dates: start: 20191008, end: 20191008
  4. PLAVIX [Suspect]
     Active Substance: CLOPIDOGREL BISULFATE
     Dosage: 75 MG, UNK
     Route: 048
     Dates: start: 20190731, end: 20190731
  5. PLAVIX [Suspect]
     Active Substance: CLOPIDOGREL BISULFATE
     Dosage: 75 MG, UNK
     Route: 048
     Dates: start: 20190819, end: 20190819
  6. ACETYLSALICYLIC ACID [Suspect]
     Active Substance: ASPIRIN
     Dosage: 100 MG, UNK
     Route: 065
     Dates: start: 20190730
  7. LIDOCAINE. [Concomitant]
     Active Substance: LIDOCAINE
     Dosage: 70 MG, UNK
     Route: 065
     Dates: start: 20191008, end: 20191008
  8. ACETYLSALICYLIC ACID [Suspect]
     Active Substance: ASPIRIN
     Dosage: 100 MG, UNK
     Route: 048
     Dates: start: 20190819, end: 20190819
  9. ACETYLSALICYLIC ACID [Suspect]
     Active Substance: ASPIRIN
     Dosage: 100 MG, UNK
     Route: 048
     Dates: start: 20190820, end: 20190924
  10. METOPROLOL. [Concomitant]
     Active Substance: METOPROLOL
     Dosage: 25 MG, UNK
     Route: 065
  11. EPHEDRINE. [Concomitant]
     Active Substance: EPHEDRINE
     Dosage: 25 MG, UNK
     Route: 065
     Dates: start: 20191008, end: 20191008
  12. PROPOFOL. [Concomitant]
     Active Substance: PROPOFOL
     Dosage: 200 MG, UNK
     Route: 065
     Dates: start: 20191008, end: 20191008
  13. ATORVASTATIN [Concomitant]
     Active Substance: ATORVASTATIN
     Dosage: 40 MG, UNK
     Route: 065
     Dates: start: 20190513
  14. ESCITALOPRAM [Concomitant]
     Active Substance: ESCITALOPRAM OXALATE
     Indication: PROPHYLAXIS
     Dosage: 10 MG, UNK
     Route: 065
     Dates: start: 20190915
  15. OMNIPAQUE [Concomitant]
     Active Substance: IOHEXOL
     Dosage: 110 UNK, UNK
     Route: 065
     Dates: start: 20191008, end: 20191008
  16. AMLODIPINE [Concomitant]
     Active Substance: AMLODIPINE BESYLATE
     Dosage: 5 MG, UNK
     Route: 065
     Dates: start: 20190513, end: 20191008
  17. ISOVUE 370 [Concomitant]
     Active Substance: IOPAMIDOL
     Dosage: 100 UNK, UNK
     Route: 065
     Dates: start: 20190904, end: 20190904
  18. ONDANSETRON [Concomitant]
     Active Substance: ONDANSETRON
     Dosage: 4 MG, UNK
     Route: 065
     Dates: start: 20191008, end: 20191008
  19. PLAVIX [Suspect]
     Active Substance: CLOPIDOGREL BISULFATE
     Dosage: 75 MG, UNK
     Route: 048
     Dates: start: 20190801, end: 20190818
  20. ACETYLSALICYLIC ACID [Suspect]
     Active Substance: ASPIRIN
     Dosage: 100 MG, UNK
     Route: 048
     Dates: start: 20190731, end: 20190731
  21. ACETYLSALICYLIC ACID [Suspect]
     Active Substance: ASPIRIN
     Dosage: 100 MG, UNK
     Route: 048
     Dates: start: 20190801, end: 20190818
  22. ACETYLSALICYLIC ACID [Suspect]
     Active Substance: ASPIRIN
     Dosage: 100 MG, UNK
     Route: 048
     Dates: start: 20190925, end: 20190925
  23. NITROGLYCERINE [Concomitant]
     Active Substance: NITROGLYCERIN
     Dosage: 0.5 MG, UNK
     Route: 065
     Dates: start: 20191008, end: 20191008
  24. PHENYLEPHRINE [Concomitant]
     Active Substance: PHENYLEPHRINE HYDROCHLORIDE
     Dosage: 400 UG, UNK
     Route: 065
     Dates: start: 20191008, end: 20191008
  25. CEFAZOLIN [Concomitant]
     Active Substance: CEFAZOLIN
     Dosage: 1 G, UNK
     Route: 065
     Dates: start: 20191008, end: 20191008

REACTIONS (3)
  - Cerebrovascular accident [Not Recovered/Not Resolved]
  - Cerebral artery stent insertion [Unknown]
  - Ischaemic stroke [Not Recovered/Not Resolved]

NARRATIVE: CASE EVENT DATE: 20190913
